FAERS Safety Report 14968005 (Version 2)
Quarter: 2018Q3

REPORT INFORMATION
  Report Type: Report from Study
  Country: CA (occurrence: CA)
  Receive Date: 20180604
  Receipt Date: 20180918
  Transmission Date: 20181010
  Serious: Yes (Other)
  Sender: FDA-Public Use
  Company Number: PHHY2017CA048597

PATIENT
  Sex: Male

DRUGS (3)
  1. EXJADE [Suspect]
     Active Substance: DEFERASIROX
     Indication: MYELODYSPLASTIC SYNDROME
     Dosage: UNK UNK, QD
     Route: 048
     Dates: start: 2009
  2. DEFERASIROX [Suspect]
     Active Substance: DEFERASIROX
     Indication: MYELODYSPLASTIC SYNDROME
     Dosage: UNK
     Route: 065
  3. EXJADE [Suspect]
     Active Substance: DEFERASIROX
     Dosage: 2000 MG, QD
     Route: 048
     Dates: start: 2009

REACTIONS (11)
  - Blood iron decreased [Unknown]
  - Memory impairment [Unknown]
  - Pain [Unknown]
  - Cerebral disorder [Unknown]
  - Dizziness [Recovered/Resolved]
  - Fall [Unknown]
  - Rib fracture [Unknown]
  - Diarrhoea [Unknown]
  - Serum ferritin increased [Recovering/Resolving]
  - Drug ineffective [Unknown]
  - Volume blood decreased [Unknown]
